FAERS Safety Report 10344135 (Version 1)
Quarter: 2014Q3

REPORT INFORMATION
  Report Type: Report from Study
  Country: US (occurrence: US)
  Receive Date: 20140728
  Receipt Date: 20140728
  Transmission Date: 20150326
  Serious: Yes (Other)
  Sender: FDA-Public Use
  Company Number: US-ROCHE-1440640

PATIENT
  Sex: Male
  Weight: 30.48 kg

DRUGS (1)
  1. NUTROPIN AQ [Suspect]
     Active Substance: SOMATROPIN
     Indication: BODY HEIGHT BELOW NORMAL
     Route: 058

REACTIONS (4)
  - Ligament sprain [Unknown]
  - Ear infection [Unknown]
  - Drug dose omission [Unknown]
  - Oropharyngeal pain [Unknown]
